FAERS Safety Report 15499919 (Version 1)
Quarter: 2018Q4

REPORT INFORMATION
  Report Type: Spontaneous
  Country: CH (occurrence: CH)
  Receive Date: 20181015
  Receipt Date: 20181015
  Transmission Date: 20190205
  Serious: Yes (Hospitalization)
  Sender: FDA-Public Use
  Company Number: PHHY2018CH121491

PATIENT
  Age: 47 Year
  Sex: Female

DRUGS (3)
  1. ZOLDORM [Suspect]
     Active Substance: ZOLPIDEM TARTRATE
     Dosage: 1 OT, QD
     Route: 048
     Dates: start: 20180917
  2. ZOLDORM [Suspect]
     Active Substance: ZOLPIDEM TARTRATE
     Dosage: 1 OT, QD
     Route: 048
     Dates: start: 20180914
  3. ZOLDORM [Suspect]
     Active Substance: ZOLPIDEM TARTRATE
     Indication: PRODUCT USED FOR UNKNOWN INDICATION
     Dosage: 25 MG, QD (25 MG PER EVENING FOR A LONG TIME, UP TO 70 MG OR EVEN 160 MG OVER 1 TO 3 DAYS)
     Route: 048

REACTIONS (1)
  - Mania [Unknown]

NARRATIVE: CASE EVENT DATE: 20180917
